FAERS Safety Report 6609761-4 (Version None)
Quarter: 2010Q1

REPORT INFORMATION
  Report Type: 
  Country: None (occurrence: None)
  Receive Date: 20100302
  Receipt Date: 20100218
  Transmission Date: 20100710
  Serious: Yes (Death)
  Sender: FDA-Public Use
  Company Number: US-WYE-H13726210

PATIENT
  Age: 47 Year
  Sex: Male

DRUGS (4)
  1. DEXTROMETHORPHAN HYDROBROMIDE [Suspect]
     Dosage: UNKNOWN
     Route: 048
     Dates: start: 20080101, end: 20080101
  2. LORAZEPAM [Suspect]
     Dosage: UNKNOWN
     Route: 065
  3. ALPRAZOLAM [Suspect]
     Dosage: UNKNOWN
     Route: 065
  4. HYDROCODONE BITARTRATE AND ACETAMINOPHEN [Suspect]
     Dosage: UNKNOWN
     Route: 065

REACTIONS (1)
  - COMPLETED SUICIDE [None]
